FAERS Safety Report 7230659-5 (Version None)
Quarter: 2011Q1

REPORT INFORMATION
  Report Type: 
  Country: None (occurrence: None)
  Receive Date: 20110105
  Receipt Date: 20101220
  Transmission Date: 20110831
  Serious: Yes (Hospitalization, Other)
  Sender: FDA-Public Use
  Company Number: JHP201000370

PATIENT
  Age: 4 Year
  Sex: Male
  Weight: 15 kg

DRUGS (6)
  1. GLUCOSE [Concomitant]
  2. SEVOFLURANE [Concomitant]
  3. KETALAR [Suspect]
     Dosage: 2 MG/KG, SLOW IV PUSH
     Route: 042
  4. OXYGEN (OXYGEN) [Concomitant]
  5. SCOPOLAMINE [Concomitant]
  6. PROPOFOL [Concomitant]

REACTIONS (9)
  - DYSPNOEA [None]
  - CYANOSIS [None]
  - OXYGEN SATURATION DECREASED [None]
  - RESTLESSNESS [None]
  - BLOOD PRESSURE DECREASED [None]
  - HEART RATE INCREASED [None]
  - PULMONARY HYPERTENSIVE CRISIS [None]
  - LARYNGEAL OEDEMA [None]
  - TONSILLAR HYPERTROPHY [None]
